FAERS Safety Report 11082106 (Version 4)
Quarter: 2015Q2

REPORT INFORMATION
  Report Type: Spontaneous
  Country: US (occurrence: US)
  Receive Date: 20150501
  Receipt Date: 20150612
  Transmission Date: 20150821
  Serious: Yes (Hospitalization, Other)
  Sender: FDA-Public Use
  Company Number: US-GLAXOSMITHKLINE-US2015GSK058209

PATIENT
  Age: 91 Year
  Sex: Female

DRUGS (8)
  1. TOPROL XL [Concomitant]
     Active Substance: METOPROLOL SUCCINATE
  2. ADVAIR DISKUS [Suspect]
     Active Substance: FLUTICASONE PROPIONATE\SALMETEROL XINAFOATE
     Indication: CHRONIC OBSTRUCTIVE PULMONARY DISEASE
     Dosage: 1 PUFF(S), BID
     Dates: start: 2005
  3. FISH OIL [Concomitant]
     Active Substance: FISH OIL
  4. DIGOXIN. [Concomitant]
     Active Substance: DIGOXIN
  5. DILTIAZEM [Concomitant]
     Active Substance: DILTIAZEM
  6. CALCIUM [Concomitant]
     Active Substance: CALCIUM
  7. ALPRAZOLAM. [Concomitant]
     Active Substance: ALPRAZOLAM
  8. XANAX [Concomitant]
     Active Substance: ALPRAZOLAM

REACTIONS (7)
  - Cardiac disorder [Unknown]
  - Pneumonia [Not Recovered/Not Resolved]
  - Hospitalisation [Unknown]
  - Dyspnoea [Unknown]
  - Asthenia [Not Recovered/Not Resolved]
  - Malaise [Unknown]
  - Vertigo [Not Recovered/Not Resolved]

NARRATIVE: CASE EVENT DATE: 201311
